FAERS Safety Report 19216617 (Version 1)
Quarter: 2021Q2

REPORT INFORMATION
  Report Type: Spontaneous
  Country: JP (occurrence: JP)
  Receive Date: 20210505
  Receipt Date: 20210505
  Transmission Date: 20210717
  Serious: Yes (Hospitalization, Other)
  Sender: FDA-Public Use
  Company Number: JP-AMGEN-JPNSP2021065486

PATIENT
  Age: 72 Year
  Sex: Male
  Weight: 66.4 kg

DRUGS (6)
  1. LOSARTAN POTASSIUM. [Concomitant]
     Active Substance: LOSARTAN POTASSIUM
     Dosage: UNK
  2. BETAMETHASONE DIPROPIONATE. [Concomitant]
     Active Substance: BETAMETHASONE DIPROPIONATE
     Dosage: UNK
  3. CALCIPOTRIOL MONOHYDRATE [Concomitant]
     Dosage: UNK
  4. OTEZLA [Suspect]
     Active Substance: APREMILAST
     Indication: PSORIASIS
     Dosage: UNK
     Route: 065
     Dates: start: 200202
  5. RIVAROXABAN [Concomitant]
     Active Substance: RIVAROXABAN
     Dosage: UNK
  6. DIFLUPREDNATE [Concomitant]
     Active Substance: DIFLUPREDNATE
     Dosage: UNK

REACTIONS (5)
  - Flushing [Unknown]
  - Psoriasis [Not Recovered/Not Resolved]
  - Oedema peripheral [Unknown]
  - Diarrhoea [Unknown]
  - Organising pneumonia [Recovering/Resolving]
